FAERS Safety Report 5004958-1 (Version None)
Quarter: 2006Q1

REPORT INFORMATION
  Report Type: 
  Country: None (occurrence: None)
  Receive Date: 20060321
  Receipt Date: 20060123
  Transmission Date: 20060701
  Serious: No
  Sender: FDA-Public Use
  Company Number: YPA20050519

PATIENT
  Age: 56 Year
  Sex: Female

DRUGS (6)
  1. VESICARE [Suspect]
     Dosage: ORAL
     Route: 048
     Dates: start: 20050601, end: 20050815
  2. HORMONES [Concomitant]
  3. CITRACAL (CALCIUM CITRATE) [Concomitant]
  4. DAILY VITAMINS (VITAMINS NOS) [Concomitant]
  5. GLUCOSAMINE (GLUCOSAMINE) [Concomitant]
  6. NEXIUM [Concomitant]

REACTIONS (3)
  - DIZZINESS [None]
  - VERTIGO [None]
  - VISION BLURRED [None]
